FAERS Safety Report 20080293 (Version 4)
Quarter: 2022Q1

REPORT INFORMATION
  Report Type: Spontaneous
  Country: AU (occurrence: AU)
  Receive Date: 20211117
  Receipt Date: 20220316
  Transmission Date: 20220424
  Serious: Yes (Hospitalization, Other)
  Sender: FDA-Public Use
  Company Number: AU-NOVOPROD-865153

PATIENT
  Sex: Female

DRUGS (1)
  1. INSULIN ASPART\INSULIN DEGLUDEC [Suspect]
     Active Substance: INSULIN ASPART\INSULIN DEGLUDEC
     Indication: Diabetes mellitus
     Dosage: 24 IU, BID
     Route: 058

REACTIONS (5)
  - Dysarthria [Unknown]
  - Hyperglycaemia [Recovered/Resolved]
  - Device malfunction [Unknown]
  - Device failure [Unknown]
  - Drug dose omission by device [Unknown]
